FAERS Safety Report 8613208-6 (Version None)
Quarter: 2012Q3

REPORT INFORMATION
  Report Type: 
  Country: None (occurrence: None)
  Receive Date: 20120822
  Receipt Date: 20120813
  Transmission Date: 20120928
  Serious: Yes (Death, Hospitalization, Other)
  Sender: FDA-Public Use
  Company Number: PH-BAXTER-2012BAX014037

PATIENT
  Sex: Male

DRUGS (2)
  1. DIANEAL PD-2 W/ DEXTROSE 2.5% [Suspect]
     Route: 033
     Dates: start: 20120713, end: 20120805
  2. DIANEAL PD-2 W/ DEXTROSE 4.25% [Suspect]
     Route: 033
     Dates: start: 20120713, end: 20120805

REACTIONS (2)
  - CEREBROVASCULAR ACCIDENT [None]
  - HYPERTENSION [None]
